FAERS Safety Report 21650366 (Version 2)
Quarter: 2022Q4

REPORT INFORMATION
  Report Type: Spontaneous
  Country: US (occurrence: US)
  Receive Date: 20221128
  Receipt Date: 20221215
  Transmission Date: 20230113
  Serious: No
  Sender: FDA-Public Use
  Company Number: US-INCYTE CORPORATION-2022IN011238

PATIENT

DRUGS (3)
  1. JAKAFI [Suspect]
     Active Substance: RUXOLITINIB
     Indication: Myeloproliferative neoplasm
     Dosage: 10 MILLIGRAM, QD
     Route: 048
     Dates: start: 202206
  2. JAKAFI [Suspect]
     Active Substance: RUXOLITINIB
     Indication: Thalassaemia minor
     Dosage: 10 MILLIGRAM, QD
     Route: 048
     Dates: start: 20220419
  3. JAKAFI [Suspect]
     Active Substance: RUXOLITINIB
     Dosage: 15 MILLIGRAM, QD
     Route: 048
     Dates: start: 20220823, end: 20221115

REACTIONS (5)
  - Blister [Unknown]
  - Rash [Unknown]
  - Weight decreased [Unknown]
  - Anaemia [Unknown]
  - Off label use [Unknown]

NARRATIVE: CASE EVENT DATE: 20220419
